FAERS Safety Report 4725767-4 (Version None)
Quarter: 2005Q3

REPORT INFORMATION
  Report Type: 
  Country: None (occurrence: None)
  Receive Date: 20050725
  Receipt Date: 20050712
  Transmission Date: 20060218
  Serious: Yes (Other)
  Sender: FDA-Public Use
  Company Number: 2005101252

PATIENT
  Sex: Female
  Weight: 45.3597 kg

DRUGS (4)
  1. BENADRYL [Suspect]
     Indication: ALLERGY TO ARTHROPOD STING
     Dosage: 2 TSP AS NEEDED, ORAL
     Route: 048
     Dates: end: 20050617
  2. LANSOPRAZOLE [Concomitant]
  3. CETIRIZINE HYDROCHLORIDE (CETIRIZINE HYRCHLORIDE) [Concomitant]
  4. EPINEPHRINE (EPINEPRHRINE) [Concomitant]

REACTIONS (5)
  - DYSPHAGIA [None]
  - FEELING ABNORMAL [None]
  - HEART RATE INCREASED [None]
  - MYOCARDIAL INFARCTION [None]
  - PHARYNGEAL HYPOAESTHESIA [None]
